FAERS Safety Report 4376588-6 (Version None)
Quarter: 2004Q2

REPORT INFORMATION
  Report Type: 
  Country: None (occurrence: None)
  Receive Date: 20040608
  Receipt Date: 20040209
  Transmission Date: 20050107
  Serious: Yes (Disabling)
  Sender: FDA-Public Use
  Company Number: A03200400381

PATIENT
  Age: 67 Year
  Sex: Male
  Weight: 90.7194 kg

DRUGS (2)
  1. ARIXTRA [Suspect]
     Indication: KNEE ARTHROPLASTY
     Dosage: 2.5 MG QD - SUBCUTANEOUS
     Route: 058
     Dates: start: 20040109, end: 20040111
  2. ARIXTRA [Suspect]
     Indication: THROMBOSIS PROPHYLAXIS
     Dosage: 2.5 MG QD - SUBCUTANEOUS
     Route: 058
     Dates: start: 20040109, end: 20040111

REACTIONS (8)
  - CONTUSION [None]
  - DIFFICULTY IN WALKING [None]
  - HAEMATOMA [None]
  - HAEMORRHAGE [None]
  - JOINT STIFFNESS [None]
  - OEDEMA PERIPHERAL [None]
  - PAIN IN EXTREMITY [None]
  - SKIN DISCOLOURATION [None]
